FAERS Safety Report 23027855 (Version 1)
Quarter: 2023Q4

REPORT INFORMATION
  Report Type: Spontaneous
  Country: US (occurrence: US)
  Receive Date: 20231004
  Receipt Date: 20231004
  Transmission Date: 20240110
  Serious: No
  Sender: FDA-Public Use
  Company Number: 11991

PATIENT
  Age: 36 Year
  Sex: Female
  Weight: 127.89 kg

DRUGS (1)
  1. BRIUMVI [Suspect]
     Active Substance: UBLITUXIMAB-XIIY
     Indication: Multiple sclerosis
     Dosage: 150 MILLIGRAM
     Route: 042
     Dates: start: 20230810

REACTIONS (2)
  - Infusion related reaction [Unknown]
  - Migraine [Unknown]

NARRATIVE: CASE EVENT DATE: 20230810
